FAERS Safety Report 7676916-X (Version None)
Quarter: 2011Q3

REPORT INFORMATION
  Report Type: 
  Country: None (occurrence: None)
  Receive Date: 20110811
  Receipt Date: 20110802
  Transmission Date: 20111222
  Serious: Yes (Other)
  Sender: FDA-Public Use
  Company Number: PHHY2011US39327

PATIENT
  Sex: Male

DRUGS (2)
  1. TRILEPTAL [Suspect]
     Indication: EPILEPSY
     Dosage: UNK ML, BID
     Route: 048
  2. TOPAMAX [Concomitant]
     Dosage: 4 DF, BID

REACTIONS (4)
  - PETIT MAL EPILEPSY [None]
  - APNOEA [None]
  - CONVULSION [None]
  - VOMITING PROJECTILE [None]
